FAERS Safety Report 8408358-3 (Version None)
Quarter: 2012Q2

REPORT INFORMATION
  Report Type: 
  Country: None (occurrence: None)
  Receive Date: 20120604
  Receipt Date: 20120521
  Transmission Date: 20120825
  Serious: Yes (Hospitalization)
  Sender: FDA-Public Use
  Company Number: FR-CELGENEUS-056-50794-12052584

PATIENT
  Sex: Male
  Weight: 75 kg

DRUGS (16)
  1. ACETAMINOPHEN [Concomitant]
     Dosage: 4 GRAM
     Route: 065
  2. ACEBUTOLOL [Concomitant]
     Dosage: 200 MILLIGRAM
     Route: 065
  3. NEXIUM [Concomitant]
     Dosage: 20 MILLIGRAM
     Route: 065
  4. MODOPAR [Concomitant]
     Route: 065
  5. MOUTH WASHES [Concomitant]
     Route: 065
  6. LASIX [Concomitant]
     Dosage: 40 MILLIGRAM
     Route: 065
  7. ATORVASTATIN [Concomitant]
     Dosage: 10 MILLIGRAM
     Route: 065
  8. POLYETHYLENE GLYCOL [Concomitant]
     Route: 065
  9. MODOPAR [Concomitant]
     Dosage: 250 MILLIGRAM
     Route: 065
  10. VICKY WATER [Concomitant]
     Route: 065
  11. EMLA [Concomitant]
     Route: 065
  12. TRIVASTAL [Concomitant]
     Dosage: 50
     Route: 065
  13. DOMPERIDONE [Concomitant]
     Route: 065
  14. VIDAZA [Suspect]
     Route: 058
     Dates: start: 20120320
  15. LEVOTHYROXINE SODIUM [Concomitant]
     Dosage: 75 MILLIGRAM
     Route: 065
  16. PERINDOPRIL ERBUMINE [Concomitant]
     Route: 065

REACTIONS (1)
  - SYNCOPE [None]
